FAERS Safety Report 19908144 (Version 2)
Quarter: 2021Q4

REPORT INFORMATION
  Report Type: Report from Study
  Country: US (occurrence: US)
  Receive Date: 20211001
  Receipt Date: 20211118
  Transmission Date: 20220303
  Serious: No
  Sender: FDA-Public Use
  Company Number: US-PFIZER INC-202101247434

PATIENT
  Age: 66 Year
  Sex: Male

DRUGS (1)
  1. MEKTOVI [Suspect]
     Active Substance: BINIMETINIB
     Dosage: 15 MG

REACTIONS (10)
  - Fluid retention [Unknown]
  - Impaired healing [Not Recovered/Not Resolved]
  - Blister [Unknown]
  - Scab [Unknown]
  - Pruritus [Unknown]
  - Pain in extremity [Unknown]
  - Chills [Unknown]
  - Decreased appetite [Unknown]
  - Constipation [Recovering/Resolving]
  - Product dose omission in error [Unknown]
